FAERS Safety Report 17014397 (Version 1)
Quarter: 2019Q4

REPORT INFORMATION
  Report Type: Spontaneous
  Country: CN (occurrence: CN)
  Receive Date: 20191111
  Receipt Date: 20191111
  Transmission Date: 20200122
  Serious: Yes (Death, Hospitalization, Other)
  Sender: FDA-Public Use
  Company Number: CN-ROCHE-2459951

PATIENT
  Age: 54 Year
  Sex: Male

DRUGS (11)
  1. DOXYCYCLINE. [Concomitant]
     Active Substance: DOXYCYCLINE
     Indication: INFECTION
     Route: 065
     Dates: start: 20170101
  2. IMIPENEM [Concomitant]
     Active Substance: IMIPENEM
     Indication: INFECTION
     Route: 065
     Dates: start: 20170101
  3. MYCOPHENOLATE MOFETIL. [Suspect]
     Active Substance: MYCOPHENOLATE MOFETIL
     Indication: PROPHYLAXIS AGAINST TRANSPLANT REJECTION
     Route: 065
  4. PREDNISONE. [Suspect]
     Active Substance: PREDNISONE
     Route: 065
     Dates: start: 20170101
  5. RIBAVIRIN. [Concomitant]
     Active Substance: RIBAVIRIN
     Indication: ANTIVIRAL TREATMENT
     Route: 065
     Dates: start: 20170101
  6. TACROLIMUS. [Suspect]
     Active Substance: TACROLIMUS
     Dosage: THE DOSE WAS MAINTAINED AT 3 TO 8 MG PER DAY.
     Route: 065
     Dates: start: 20170101
  7. TACROLIMUS. [Suspect]
     Active Substance: TACROLIMUS
     Indication: PROPHYLAXIS AGAINST TRANSPLANT REJECTION
     Route: 065
  8. ITRACONAZOLE. [Concomitant]
     Active Substance: ITRACONAZOLE
     Indication: INFECTION
     Route: 065
     Dates: start: 20170101
  9. TACROLIMUS. [Suspect]
     Active Substance: TACROLIMUS
     Route: 065
     Dates: start: 20170101
  10. GANCICLOVIR. [Suspect]
     Active Substance: GANCICLOVIR
     Indication: ANTIVIRAL TREATMENT
     Route: 065
     Dates: start: 20170101
  11. PREDNISONE. [Suspect]
     Active Substance: PREDNISONE
     Indication: PROPHYLAXIS AGAINST TRANSPLANT REJECTION
     Route: 065

REACTIONS (11)
  - Respiratory failure [Fatal]
  - Bacterial infection [Unknown]
  - Acute respiratory distress syndrome [Unknown]
  - Parainfluenzae virus infection [Unknown]
  - Burkholderia cepacia complex infection [Unknown]
  - Intentional product use issue [Unknown]
  - Pneumonia [Unknown]
  - Pseudomonas infection [Unknown]
  - Off label use [Unknown]
  - Septic shock [Fatal]
  - Aspergillus infection [Unknown]

NARRATIVE: CASE EVENT DATE: 20171111
